FAERS Safety Report 7627748-X (Version None)
Quarter: 2011Q3

REPORT INFORMATION
  Report Type: 
  Country: None (occurrence: None)
  Receive Date: 20110721
  Receipt Date: 20110711
  Transmission Date: 20111222
  Serious: Yes (Hospitalization)
  Sender: FDA-Public Use
  Company Number: US-BAXTER-2011BH022542

PATIENT
  Age: 4 Month
  Sex: Male

DRUGS (2)
  1. DIANEAL [Suspect]
     Indication: PERITONEAL DIALYSIS
     Route: 033
     Dates: start: 20110501
  2. DIANEAL [Suspect]
     Route: 033
     Dates: start: 20110511

REACTIONS (4)
  - DEVICE RELATED INFECTION [None]
  - POOR WEIGHT GAIN NEONATAL [None]
  - PYREXIA [None]
  - VOMITING [None]
